FAERS Safety Report 7121438-8 (Version None)
Quarter: 2010Q4

REPORT INFORMATION
  Report Type: 
  Country: None (occurrence: None)
  Receive Date: 20101124
  Receipt Date: 20101118
  Transmission Date: 20110411
  Serious: Yes (Death, Hospitalization)
  Sender: FDA-Public Use
  Company Number: PHHY2010IE55459

PATIENT
  Sex: Male
  Weight: 72 kg

DRUGS (26)
  1. ACZ885 ACZ+ [Suspect]
     Indication: TUMOUR NECROSIS FACTOR RECEPTOR-ASSOCIATED PERIODIC SYNDROME
     Dosage: 150 MG, ONCE/SINGLE
     Route: 058
     Dates: start: 20100511
  2. ACZ885 ACZ+ [Suspect]
     Dosage: 150 MG, ONCE/SINGLE
     Route: 058
     Dates: start: 20100610
  3. ACZ885 ACZ+ [Suspect]
     Dosage: 150 MG, ONCE/SINGLE
     Route: 058
     Dates: start: 20100708
  4. ACZ885 ACZ+ [Suspect]
     Dosage: 150 MG, ONCE/SINGLE
     Route: 058
     Dates: start: 20100723
  5. ACZ885 ACZ+ [Suspect]
     Dosage: 150 MG, ONCE/SINGLE
     Route: 058
     Dates: start: 20100806
  6. ACZ885 ACZ+ [Suspect]
     Dosage: 150 MG, ONCE/SINGLE
     Route: 058
     Dates: start: 20100820
  7. PREDNISOLONE [Suspect]
  8. ENBREL [Suspect]
  9. DIALYSIS [Concomitant]
  10. SEVELAMER [Concomitant]
  11. ALFACALCIDOL [Concomitant]
     Dosage: UNK
     Route: 048
     Dates: start: 20091101, end: 20100801
  12. PREGABALIN [Concomitant]
  13. OXYCONTIN [Concomitant]
  14. OROVITE [Concomitant]
  15. FOLIC ACID [Concomitant]
  16. LANSOPRAZOLE [Concomitant]
  17. MORPHINE [Concomitant]
  18. OXYNORM [Concomitant]
  19. STEMETIL [Concomitant]
  20. PARACETAMOL [Concomitant]
  21. XANAX [Concomitant]
  22. CO-TRIMOXAZOLE [Concomitant]
  23. CLARITHROMYCIN [Concomitant]
  24. ENOXAPARIN SODIUM [Concomitant]
  25. CEFUROXIME [Concomitant]
  26. INNOHEP                                 /GFR/ [Concomitant]

REACTIONS (32)
  - ABDOMINAL PAIN [None]
  - AMYLOIDOSIS [None]
  - ASCITES [None]
  - ATELECTASIS [None]
  - CARDIAC ARREST [None]
  - CARDIAC TAMPONADE [None]
  - CHEST PAIN [None]
  - CHOLECYSTITIS [None]
  - COUGH [None]
  - DISEASE PROGRESSION [None]
  - DYSPNOEA [None]
  - FASCIITIS [None]
  - GRANULOMA [None]
  - INFLAMMATION [None]
  - JOINT SWELLING [None]
  - MUSCULOSKELETAL STIFFNESS [None]
  - MYALGIA [None]
  - NAUSEA [None]
  - OSTEONECROSIS [None]
  - PERICARDITIS TUBERCULOUS [None]
  - PERITONEAL TUBERCULOSIS [None]
  - PLEURAL EFFUSION [None]
  - PLEURISY [None]
  - PLEURITIC PAIN [None]
  - PULMONARY TUBERCULOSIS [None]
  - PYREXIA [None]
  - RENAL FAILURE [None]
  - SEROSITIS [None]
  - SINUS TACHYCARDIA [None]
  - TUMOUR NECROSIS FACTOR RECEPTOR-ASSOCIATED PERIODIC SYNDROME [None]
  - VENOUS PRESSURE JUGULAR INCREASED [None]
  - WHEEZING [None]
